FAERS Safety Report 8838497 (Version 3)
Quarter: 2014Q1

REPORT INFORMATION
  Report Type: Spontaneous
  Country: US (occurrence: US)
  Receive Date: 20121012
  Receipt Date: 20140203
  Transmission Date: 20141002
  Serious: Yes (Hospitalization, Other)
  Sender: FDA-Public Use
  Company Number: US-ROCHE-1027772

PATIENT
  Age: 17 Year
  Sex: Female
  Weight: 57.2 kg

DRUGS (3)
  1. ACCUTANE [Suspect]
     Indication: ACNE
     Route: 065
     Dates: start: 20021220, end: 20030122
  2. ACCUTANE [Suspect]
     Route: 065
     Dates: start: 20030218, end: 20030602
  3. DEPO-PROVERA [Concomitant]
     Indication: CONTRACEPTION

REACTIONS (11)
  - Crohn^s disease [Unknown]
  - Colitis ulcerative [Unknown]
  - Inflammatory bowel disease [Unknown]
  - Depression [Unknown]
  - Mental disorder [Unknown]
  - Suicidal ideation [Unknown]
  - Bipolar disorder [Unknown]
  - Lip dry [Unknown]
  - Blood cholesterol increased [Unknown]
  - Ingrowing nail [Unknown]
  - Infection [Unknown]
